FAERS Safety Report 9778073 (Version 2)
Quarter: 2014Q1

REPORT INFORMATION
  Report Type: Spontaneous
  Country: PL (occurrence: PL)
  Receive Date: 20131223
  Receipt Date: 20140129
  Transmission Date: 20141002
  Serious: Yes (Other)
  Sender: FDA-Public Use
  Company Number: PL-ROCHE-1323808

PATIENT
  Age: 59 Year
  Sex: Female
  Weight: 59 kg

DRUGS (5)
  1. BONVIVA [Suspect]
     Indication: PRODUCT USED FOR UNKNOWN INDICATION
     Route: 048
     Dates: start: 20130527, end: 20131209
  2. TIALORID [Concomitant]
  3. LETROX [Concomitant]
     Route: 065
  4. ACCUPRO [Concomitant]
     Route: 065
  5. METOCAL [Concomitant]
     Route: 065

REACTIONS (1)
  - Chordoma [Not Recovered/Not Resolved]
